FAERS Safety Report 6943989-9 (Version None)
Quarter: 2010Q3

REPORT INFORMATION
  Report Type: 
  Country: None (occurrence: None)
  Receive Date: 20100827
  Receipt Date: 20100824
  Transmission Date: 20110219
  Serious: Yes (Other)
  Sender: FDA-Public Use
  Company Number: US-ASTRAZENECA-2007UW27697

PATIENT
  Age: 58 Year
  Sex: Female
  Weight: 127 kg

DRUGS (6)
  1. SEROQUEL [Suspect]
     Indication: ANXIETY
     Route: 048
     Dates: start: 19990101, end: 20030101
  2. SEROQUEL [Suspect]
     Indication: DEPRESSION
     Route: 048
     Dates: start: 19990101, end: 20030101
  3. SEROQUEL [Suspect]
     Route: 048
     Dates: start: 20021213, end: 20070601
  4. SEROQUEL [Suspect]
     Route: 048
     Dates: start: 20021213, end: 20070601
  5. SEROQUEL [Suspect]
     Dosage: 25-50 MG
     Route: 048
     Dates: start: 20030201, end: 20070501
  6. SEROQUEL [Suspect]
     Dosage: 25-50 MG
     Route: 048
     Dates: start: 20030201, end: 20070501

REACTIONS (6)
  - ARTHROPATHY [None]
  - DIABETIC COMPLICATION [None]
  - GENERAL PHYSICAL HEALTH DETERIORATION [None]
  - OBESITY [None]
  - PNEUMONIA [None]
  - TYPE 2 DIABETES MELLITUS [None]
